FAERS Safety Report 6689413-5 (Version None)
Quarter: 2010Q2

REPORT INFORMATION
  Report Type: 
  Country: None (occurrence: None)
  Receive Date: 20100420
  Receipt Date: 20100408
  Transmission Date: 20101027
  Serious: Yes (Death, Hospitalization, Other)
  Sender: FDA-Public Use
  Company Number: GB-BRISTOL-MYERS SQUIBB COMPANY-14789986

PATIENT
  Age: 71 Year
  Sex: Female

DRUGS (11)
  1. METFORMIN HCL [Suspect]
     Indication: TYPE 2 DIABETES MELLITUS
     Route: 065
  2. PARACETAMOL [Suspect]
     Route: 065
  3. ETAMSYLATE [Suspect]
     Indication: GASTROINTESTINAL HAEMORRHAGE
     Route: 048
  4. LANSOPRAZOLE [Suspect]
     Route: 048
  5. TRANEXAMIC ACID [Suspect]
     Indication: GASTROINTESTINAL HAEMORRHAGE
     Route: 048
  6. THEOPHYLLINE [Suspect]
     Indication: CHRONIC OBSTRUCTIVE PULMONARY DISEASE
     Route: 065
  7. CAPECITABINE [Suspect]
     Indication: GASTRIC CANCER
     Route: 048
  8. CAPECITABINE [Suspect]
     Route: 048
  9. THALIDOMIDE [Concomitant]
     Dosage: REDUCED TO 200MG,THEN 100MG TAKEN EVERY NIGHT
  10. SUCRALFATE [Concomitant]
  11. PANTOPRAZOLE [Concomitant]
     Route: 042

REACTIONS (8)
  - ANAEMIA [None]
  - CONDITION AGGRAVATED [None]
  - DEATH [None]
  - GASTROINTESTINAL HAEMORRHAGE [None]
  - MALIGNANT NEOPLASM PROGRESSION [None]
  - MELAENA [None]
  - RECTAL HAEMORRHAGE [None]
  - SEPSIS [None]
